FAERS Safety Report 7559000-5 (Version None)
Quarter: 2011Q2

REPORT INFORMATION
  Report Type: 
  Country: None (occurrence: None)
  Receive Date: 20110621
  Receipt Date: 20110620
  Transmission Date: 20111010
  Serious: Yes (Other)
  Sender: FDA-Public Use
  Company Number: US-PFIZER INC-2011064703

PATIENT
  Sex: Female

DRUGS (5)
  1. PRISTIQ [Suspect]
     Dosage: 100 MG DAILY
     Route: 048
     Dates: end: 20110203
  2. LISINOPRIL [Concomitant]
     Dosage: UNK
  3. SIMVASTATIN [Concomitant]
     Dosage: UNK
  4. PRISTIQ [Suspect]
     Indication: DEPRESSION
     Dosage: 50 MG, UNK
     Route: 048
  5. HYDROCHLOROTHIAZIDE [Concomitant]
     Dosage: UNK

REACTIONS (2)
  - BLOOD PRESSURE INCREASED [None]
  - DIZZINESS [None]
